FAERS Safety Report 5410463-0 (Version None)
Quarter: 2007Q3

REPORT INFORMATION
  Report Type: 
  Country: None (occurrence: None)
  Receive Date: 20070810
  Receipt Date: 20061221
  Transmission Date: 20080115
  Serious: No
  Sender: FDA-Public Use
  Company Number: A0632465A

PATIENT
  Age: 8 Year
  Sex: Male

DRUGS (2)
  1. PAXIL [Suspect]
     Indication: DEPRESSION
     Dates: end: 19970101
  2. NO CONCURRENT MEDICATION [Concomitant]

REACTIONS (2)
  - CHEST PAIN [None]
  - DRUG EXPOSURE DURING PREGNANCY [None]
